FAERS Safety Report 16791135 (Version 1)
Quarter: 2019Q3

REPORT INFORMATION
  Report Type: Report from Study
  Country: FR (occurrence: FR)
  Receive Date: 20190910
  Receipt Date: 20190910
  Transmission Date: 20191005
  Serious: Yes (Hospitalization, Other)
  Sender: FDA-Public Use
  Company Number: FR-MYLANLABS-2019M1083874

PATIENT
  Age: 64 Year
  Sex: Female
  Weight: 60 kg

DRUGS (3)
  1. CISPLATIN. [Suspect]
     Active Substance: CISPLATIN
     Indication: OESOPHAGEAL CARCINOMA
     Dosage: 126 MG, UNK
     Route: 065
     Dates: start: 20171023, end: 20171024
  2. NAVELBINE [Suspect]
     Active Substance: VINORELBINE TARTRATE
     Indication: OESOPHAGEAL CARCINOMA
     Dosage: 47 MG, UNK
     Route: 065
     Dates: start: 20171023, end: 20171024
  3. ZARZIO [Suspect]
     Active Substance: FILGRASTIM
     Indication: FEBRILE NEUTROPENIA
     Dosage: 30 MU, QD (POST COURSE)
     Route: 058
     Dates: start: 20171023

REACTIONS (6)
  - Renal failure [Recovered/Resolved]
  - Dehydration [Recovered/Resolved]
  - Abdominal pain [Unknown]
  - Neutropenia [Recovered/Resolved]
  - Vomiting [Recovered/Resolved]
  - Nausea [Recovered/Resolved]

NARRATIVE: CASE EVENT DATE: 20171023
